FAERS Safety Report 6379239-4 (Version None)
Quarter: 2009Q3

REPORT INFORMATION
  Report Type: 
  Country: None (occurrence: None)
  Receive Date: 20090928
  Receipt Date: 20090914
  Transmission Date: 20100115
  Serious: Yes (Other)
  Sender: FDA-Public Use
  Company Number: GB-MYLANLABS-2009S1016243

PATIENT
  Age: 14 Year
  Sex: Female

DRUGS (4)
  1. ERYTHROMYCIN [Suspect]
     Indication: TONSILLITIS
     Route: 048
  2. CEFUROXIME [Concomitant]
     Indication: SEPSIS
     Route: 042
  3. METRONIDAZOLE [Concomitant]
     Indication: BACTERIAL SEPSIS
     Route: 042
  4. ERYTHROMYCIN [Concomitant]
     Indication: BACTERIAL SEPSIS

REACTIONS (7)
  - ABDOMINAL PAIN [None]
  - BACTERIAL SEPSIS [None]
  - CHEST PAIN [None]
  - JUGULAR VEIN THROMBOSIS [None]
  - LUNG ABSCESS [None]
  - LYMPHADENOPATHY [None]
  - WHEEZING [None]
